FAERS Safety Report 19209133 (Version 2)
Quarter: 2021Q2

REPORT INFORMATION
  Report Type: Spontaneous
  Country: US (occurrence: US)
  Receive Date: 20210503
  Receipt Date: 20210522
  Transmission Date: 20210717
  Serious: Yes (Hospitalization, Other)
  Sender: FDA-Public Use
  Company Number: NVSC2021US092185

PATIENT
  Age: 68 Year
  Sex: Male

DRUGS (2)
  1. ENTRESTO [Suspect]
     Active Substance: SACUBITRIL\VALSARTAN
     Indication: PRODUCT USED FOR UNKNOWN INDICATION
     Dosage: UNK
     Route: 065
  2. VENCLEXTA [Suspect]
     Active Substance: VENETOCLAX
     Indication: ACUTE MYELOID LEUKAEMIA
     Dosage: UNK
     Route: 048
     Dates: start: 202002

REACTIONS (12)
  - Angina pectoris [Unknown]
  - Neoplasm malignant [Unknown]
  - White blood cell count decreased [Recovering/Resolving]
  - Infection [Unknown]
  - Bone marrow disorder [Unknown]
  - Gait disturbance [Unknown]
  - Procedural complication [Unknown]
  - Cell death [Unknown]
  - Stress [Unknown]
  - Musculoskeletal disorder [Unknown]
  - Blood pressure decreased [Unknown]
  - Haemoglobin abnormal [Unknown]

NARRATIVE: CASE EVENT DATE: 202104
